FAERS Safety Report 6794945-5 (Version None)
Quarter: 2010Q2

REPORT INFORMATION
  Report Type: 
  Country: None (occurrence: None)
  Receive Date: 20100625
  Receipt Date: 20100615
  Transmission Date: 20101027
  Serious: Yes (Other)
  Sender: FDA-Public Use
  Company Number: US-MILLENNIUM PHARMACEUTICALS, INC.-2010-03062

PATIENT
  Age: 57 Year
  Sex: Female
  Weight: 90.2 kg

DRUGS (10)
  1. VELCADE [Suspect]
     Indication: MANTLE CELL LYMPHOMA
  2. CYCLOPHOSPHAMIDE [Suspect]
     Indication: MANTLE CELL LYMPHOMA
  3. VINCRISTINE [Suspect]
     Indication: MANTLE CELL LYMPHOMA
  4. DOXORUBICIN HCL [Suspect]
     Indication: MANTLE CELL LYMPHOMA
  5. DEXAMETHASONE [Suspect]
     Indication: MANTLE CELL LYMPHOMA
  6. CYTARABINE [Suspect]
     Indication: MANTLE CELL LYMPHOMA
  7. MELPHALAN HYDROCHLORIDE [Suspect]
     Indication: MANTLE CELL LYMPHOMA
  8. RITUXAN [Suspect]
     Indication: MANTLE CELL LYMPHOMA
  9. CARMUSTINE [Suspect]
     Indication: MANTLE CELL LYMPHOMA
  10. ETOPOSIDE [Suspect]
     Indication: MANTLE CELL LYMPHOMA

REACTIONS (1)
  - MYELODYSPLASTIC SYNDROME [None]
